FAERS Safety Report 8024756-4 (Version None)
Quarter: 2012Q1

REPORT INFORMATION
  Report Type: 
  Country: None (occurrence: None)
  Receive Date: 20120103
  Receipt Date: 20111223
  Transmission Date: 20120608
  Serious: Yes (Hospitalization, Disabling, Congenital Anomaly)
  Sender: FDA-Public Use
  Company Number: 2011MA018075

PATIENT
  Sex: Female

DRUGS (3)
  1. DIAZEPAM [Suspect]
     Dosage: 10 ML;QD;TRPL
     Route: 064
  2. DIAZEPAM [Suspect]
     Indication: FOETAL EXPOSURE DURING PREGNANCY
     Dosage: 20 ML;TRPL
     Route: 064
     Dates: start: 19851219
  3. FENTANYL CITRATE [Suspect]
     Dosage: 150 MG;TRPL
     Route: 064
     Dates: start: 19851219

REACTIONS (5)
  - MATERNAL DRUGS AFFECTING FOETUS [None]
  - PIERRE ROBIN SYNDROME [None]
  - TALIPES [None]
  - CONGENITAL HIP DEFORMITY [None]
  - CLEFT PALATE [None]
